FAERS Safety Report 25112222 (Version 1)
Quarter: 2025Q1

REPORT INFORMATION
  Report Type: Spontaneous
  Country: US (occurrence: US)
  Receive Date: 20250324
  Receipt Date: 20250324
  Transmission Date: 20250408
  Serious: No
  Sender: UCB
  Company Number: US-UCBSA-2024011419

PATIENT
  Sex: Male

DRUGS (3)
  1. BRIVARACETAM [Suspect]
     Active Substance: BRIVARACETAM
     Indication: Epilepsy
     Dosage: 3 MILLILITER, 2X/DAY (BID), ORAL SOLUTION
     Route: 048
  2. BRIVARACETAM [Suspect]
     Active Substance: BRIVARACETAM
     Indication: Off label use
  3. DIAZEPAM [Concomitant]
     Active Substance: DIAZEPAM
     Indication: Epilepsy
     Route: 054

REACTIONS (1)
  - No adverse event [Unknown]
